FAERS Safety Report 5741610-9 (Version None)
Quarter: 2008Q2

REPORT INFORMATION
  Report Type: 
  Country: None (occurrence: None)
  Receive Date: 20080519
  Receipt Date: 20070724
  Transmission Date: 20081010
  Serious: Yes (Other)
  Sender: FDA-Public Use
  Company Number: US-BAYER-US-2007-027500

PATIENT
  Age: 32 Year
  Sex: Female

DRUGS (3)
  1. FLUDARA [Suspect]
     Indication: WALDENSTROM'S MACROGLOBULINAEMIA
  2. RITUXIMAB [Suspect]
     Indication: WALDENSTROM'S MACROGLOBULINAEMIA
  3. ADEFOVIR DIPIVOXIL KIT [Concomitant]
     Indication: ANTIVIRAL PROPHYLAXIS

REACTIONS (1)
  - HEPATITIS B [None]
